FAERS Safety Report 5019425-9 (Version None)
Quarter: 2006Q2

REPORT INFORMATION
  Report Type: 
  Country: None (occurrence: None)
  Receive Date: 20060601
  Receipt Date: 20060517
  Transmission Date: 20061013
  Serious: Yes (Life-Threatening)
  Sender: FDA-Public Use
  Company Number: 2006P1000310

PATIENT
  Age: 78 Year
  Sex: Male
  Weight: 80 kg

DRUGS (13)
  1. RETEPLASE (RETEPLASE) [Suspect]
     Indication: ACUTE MYOCARDIAL INFARCTION
     Dosage: IV
     Route: 042
     Dates: start: 20060508
  2. REOPRO [Suspect]
     Indication: ACUTE MYOCARDIAL INFARCTION
     Dosage: IV
     Route: 042
     Dates: start: 20060508
  3. NITROGLYCERIN [Concomitant]
  4. NITROGLYCERIN [Concomitant]
  5. DOPAMINE [Concomitant]
  6. HEPARIN [Concomitant]
  7. HEPARIN [Concomitant]
  8. VASOCARDIN [Concomitant]
  9. ASPIRIN [Concomitant]
  10. FENTANYL [Concomitant]
  11. RANITIDINE [Concomitant]
  12. ISOKET [Concomitant]
  13. INSULIN [Concomitant]

REACTIONS (12)
  - ACTIVATED PARTIAL THROMBOPLASTIN TIME PROLONGED [None]
  - ACUTE RESPIRATORY DISTRESS SYNDROME [None]
  - ALANINE AMINOTRANSFERASE INCREASED [None]
  - ASPARTATE AMINOTRANSFERASE INCREASED [None]
  - BLOOD BILIRUBIN INCREASED [None]
  - CORONARY ARTERY STENOSIS [None]
  - HAEMORRHAGE CORONARY ARTERY [None]
  - PCO2 DECREASED [None]
  - PERICARDIAL HAEMORRHAGE [None]
  - PO2 DECREASED [None]
  - POST PROCEDURAL HAEMORRHAGE [None]
  - VENTRICULAR FIBRILLATION [None]
